FAERS Safety Report 9325761 (Version 2)
Quarter: 2013Q3

REPORT INFORMATION
  Report Type: Spontaneous
  Country: US (occurrence: US)
  Receive Date: 20130604
  Receipt Date: 20130717
  Transmission Date: 20140515
  Serious: Yes (Other)
  Sender: FDA-Public Use
  Company Number: US-ASTELLAS-2013US005709

PATIENT
  Age: 77 Year
  Sex: Male

DRUGS (1)
  1. XTANDI [Suspect]
     Indication: PRODUCT USED FOR UNKNOWN INDICATION
     Dosage: 160 MG, UID/QD
     Route: 048
     Dates: start: 20130422

REACTIONS (1)
  - Haemoglobin decreased [Unknown]
